FAERS Safety Report 21178391 (Version 1)
Quarter: 2022Q3

REPORT INFORMATION
  Report Type: Spontaneous
  Country: US (occurrence: US)
  Receive Date: 20220805
  Receipt Date: 20220805
  Transmission Date: 20221027
  Serious: No
  Sender: FDA-Public Use
  Company Number: US-BAYER-2022A109338

PATIENT
  Sex: Female

DRUGS (3)
  1. BETASERON [Suspect]
     Active Substance: INTERFERON BETA-1B
     Dosage: 0.75 ML
  2. BETASERON [Suspect]
     Active Substance: INTERFERON BETA-1B
     Dosage: 0.25 UNK
  3. DEVICE [Suspect]
     Active Substance: DEVICE

REACTIONS (5)
  - Injection site reaction [None]
  - Memory impairment [None]
  - Product dose omission issue [None]
  - Incorrect dose administered by device [None]
  - Device delivery system issue [None]
